FAERS Safety Report 6141823-0 (Version None)
Quarter: 2009Q2

REPORT INFORMATION
  Report Type: 
  Country: None (occurrence: None)
  Receive Date: 20090402
  Receipt Date: 20090331
  Transmission Date: 20091009
  Serious: Yes (Hospitalization)
  Sender: FDA-Public Use
  Company Number: US-BRISTOL-MYERS SQUIBB COMPANY-14547905

PATIENT
  Age: 74 Year
  Sex: Female
  Weight: 58 kg

DRUGS (13)
  1. COUMADIN [Suspect]
     Indication: AORTIC VALVE REPLACEMENT
     Route: 048
     Dates: start: 20060601
  2. COUMADIN [Suspect]
     Indication: CORONARY ARTERY BYPASS
     Route: 048
     Dates: start: 20060601
  3. COUMADIN [Suspect]
     Indication: ATRIAL FIBRILLATION
     Route: 048
     Dates: start: 20060601
  4. LANOXIN [Concomitant]
  5. DIGOXIN [Concomitant]
  6. COLACE [Concomitant]
  7. ATARAX [Concomitant]
  8. ADVAIR HFA [Concomitant]
  9. SEREVENT [Concomitant]
  10. ASPIRIN [Concomitant]
  11. EYE DROPS [Concomitant]
  12. VITAMIN B COMPLEX CAP [Concomitant]
  13. BENADRYL [Concomitant]

REACTIONS (13)
  - BLOOD GLUCOSE INCREASED [None]
  - BLOOD PRESSURE DECREASED [None]
  - BLOOD SODIUM DECREASED [None]
  - BUNDLE BRANCH BLOCK RIGHT [None]
  - CARDIAC MURMUR [None]
  - INTERNATIONAL NORMALISED RATIO FLUCTUATION [None]
  - PRURITUS [None]
  - RASH [None]
  - RASH GENERALISED [None]
  - TRANSIENT ISCHAEMIC ATTACK [None]
  - TREATMENT NONCOMPLIANCE [None]
  - VISUAL FIELD DEFECT [None]
  - VISUAL IMPAIRMENT [None]
